FAERS Safety Report 9417329 (Version 1)
Quarter: 2013Q3

REPORT INFORMATION
  Report Type: Spontaneous
  Country: US (occurrence: US)
  Receive Date: 20130724
  Receipt Date: 20130724
  Transmission Date: 20140515
  Serious: No
  Sender: FDA-Public Use
  Company Number: US-BRISTOL-MYERS SQUIBB COMPANY-18896001

PATIENT
  Age: 83 Year
  Sex: Female
  Weight: 68.03 kg

DRUGS (5)
  1. ELIQUIS [Suspect]
     Indication: ATRIAL FIBRILLATION
  2. LYRICA [Concomitant]
     Indication: NEUROPATHY PERIPHERAL
  3. METOPROLOL [Concomitant]
     Indication: ATRIAL FIBRILLATION
  4. SPIRIVA [Concomitant]
     Indication: ASTHMA
  5. LOSARTAN POTASSIUM [Concomitant]
     Indication: BLOOD PRESSURE

REACTIONS (1)
  - Headache [Not Recovered/Not Resolved]
